FAERS Safety Report 12682734 (Version 1)
Quarter: 2016Q3

REPORT INFORMATION
  Report Type: Report from Study
  Country: JP (occurrence: JP)
  Receive Date: 20160825
  Receipt Date: 20160825
  Transmission Date: 20161109
  Serious: Yes (Other)
  Sender: FDA-Public Use
  Company Number: JP-ROCHE-1817642

PATIENT

DRUGS (6)
  1. CICLOSPORIN [Suspect]
     Active Substance: CYCLOSPORINE
     Indication: PROPHYLAXIS AGAINST TRANSPLANT REJECTION
     Dosage: 6-8 MG/KG/DAY, STARTED 1 DAY PRETRANSPLANT
     Route: 065
  2. MYCOPHENOLATE MOFETIL. [Suspect]
     Active Substance: MYCOPHENOLATE MOFETIL
     Indication: PROPHYLAXIS AGAINST TRANSPLANT REJECTION
     Dosage: 28 DAYS BEFORE TRANSPLANTATION
     Route: 065
  3. PREDNISOLONE. [Suspect]
     Active Substance: PREDNISOLONE
     Indication: PROPHYLAXIS AGAINST TRANSPLANT REJECTION
     Dosage: 28 DAYS BEFORE TRANSPLANTATION
     Route: 048
  4. RITUXIMAB [Suspect]
     Active Substance: RITUXIMAB
     Indication: PROPHYLAXIS AGAINST TRANSPLANT REJECTION
     Dosage: 14 DAYS AND 1 DAY PRETRANSPLANT
     Route: 042
  5. TACROLIMUS. [Suspect]
     Active Substance: TACROLIMUS
     Indication: PROPHYLAXIS AGAINST TRANSPLANT REJECTION
     Dosage: 0.15-0.20 MG/KG/DAY, STARTED 2 DAYS PRETRANSPLANT
     Route: 065
  6. BASILIXIMAB [Suspect]
     Active Substance: BASILIXIMAB
     Indication: PROPHYLAXIS AGAINST TRANSPLANT REJECTION
     Dosage: 20 MG/BODY ON THE DAY OF TRANSPLANTATION 4 DAYS POSTTRANSPLANT
     Route: 065

REACTIONS (10)
  - Urinary tract infection [Recovered/Resolved]
  - Herpes zoster [Recovered/Resolved]
  - Pyrexia [Recovered/Resolved]
  - Cytomegalovirus infection [Recovered/Resolved]
  - White blood cell count decreased [Recovered/Resolved]
  - Hand-foot-and-mouth disease [Recovered/Resolved]
  - Upper respiratory tract inflammation [Recovered/Resolved]
  - Neutrophil count decreased [Recovered/Resolved]
  - Blood pressure increased [Recovered/Resolved]
  - Duodenal ulcer [Recovered/Resolved]
